FAERS Safety Report 5605017-7 (Version None)
Quarter: 2008Q1

REPORT INFORMATION
  Report Type: 
  Country: None (occurrence: None)
  Receive Date: 20080111
  Receipt Date: 20070727
  Transmission Date: 20080703
  Serious: Yes (Other)
  Sender: FDA-Public Use
  Company Number: HQ6234617JAN2003

PATIENT
  Age: 45 Year
  Sex: Female

DRUGS (1)
  1. PREMPRO [Suspect]
     Dosage: 0.625MG, ORAL
     Route: 048
     Dates: start: 19990701, end: 20010111

REACTIONS (1)
  - BREAST CANCER FEMALE [None]
